FAERS Safety Report 10155706 (Version 1)
Quarter: 2014Q2

REPORT INFORMATION
  Report Type: Spontaneous
  Country: US (occurrence: US)
  Receive Date: 20140506
  Receipt Date: 20140506
  Transmission Date: 20141212
  Serious: Yes (Other)
  Sender: FDA-Public Use
  Company Number: 2014SP002373

PATIENT
  Age: 56 Year
  Sex: Male

DRUGS (5)
  1. METHOTREXATE [Suspect]
     Indication: PRODUCT USED FOR UNKNOWN INDICATION
     Dosage: UNK
  2. ETANERCEPT [Suspect]
     Indication: RHEUMATOID ARTHRITIS
     Dosage: 50 MG, QWK
     Dates: start: 199901, end: 2011
  3. ETANERCEPT [Suspect]
     Indication: RHEUMATOID ARTHRITIS
     Dates: start: 201303
  4. HYDROXYCHLOROQUINE PHOSPHATE [Concomitant]
     Dosage: 200 MG, QD
     Route: 048
     Dates: start: 201304
  5. CELECOXIB [Concomitant]
     Dosage: 200 MG, QD
     Dates: start: 201304, end: 20140413

REACTIONS (13)
  - Pulmonary fibrosis [Unknown]
  - Lung disorder [Unknown]
  - Bladder cancer [Recovered/Resolved]
  - Knee arthroplasty [Recovered/Resolved]
  - Renal failure [Not Recovered/Not Resolved]
  - Toe operation [Recovered/Resolved]
  - Chondrolysis [Not Recovered/Not Resolved]
  - Hypoaesthesia [Not Recovered/Not Resolved]
  - Ligament sprain [Unknown]
  - Pain in extremity [Not Recovered/Not Resolved]
  - Arthralgia [Not Recovered/Not Resolved]
  - Condition aggravated [Unknown]
  - Injection site bruising [Unknown]
